FAERS Safety Report 23932756 (Version 1)
Quarter: 2024Q2

REPORT INFORMATION
  Report Type: Spontaneous
  Country: CN (occurrence: CN)
  Receive Date: 20240603
  Receipt Date: 20240603
  Transmission Date: 20240716
  Serious: Yes (Life-Threatening, Other)
  Sender: FDA-Public Use
  Company Number: CN-BAYER-2024A080320

PATIENT
  Age: 38 Year
  Sex: Male

DRUGS (2)
  1. ULTRAVIST [Suspect]
     Active Substance: IOPROMIDE
     Indication: Computerised tomogram
     Dosage: 100 ML, ONCE
     Dates: start: 20240527, end: 20240527
  2. ULTRAVIST [Suspect]
     Active Substance: IOPROMIDE
     Indication: Ill-defined disorder

REACTIONS (3)
  - Contrast media allergy [Recovered/Resolved]
  - Dizziness [Recovered/Resolved]
  - Hypohidrosis [Recovered/Resolved]

NARRATIVE: CASE EVENT DATE: 20240527
